FAERS Safety Report 18249179 (Version 1)
Quarter: 2020Q3

REPORT INFORMATION
  Report Type: Other
  Country: CA (occurrence: CA)
  Receive Date: 20200910
  Receipt Date: 20200910
  Transmission Date: 20201103
  Serious: Yes (Other)
  Sender: FDA-Public Use
  Company Number: CA-ROCHE-2236238

PATIENT
  Age: 45 Year
  Sex: Female

DRUGS (11)
  1. OCREVUS [Suspect]
     Active Substance: OCRELIZUMAB
     Indication: MULTIPLE SCLEROSIS
     Route: 042
     Dates: start: 20181219, end: 20191204
  2. OCREVUS [Suspect]
     Active Substance: OCRELIZUMAB
     Route: 042
     Dates: start: 20191204, end: 20191204
  3. BIOTIN [Concomitant]
     Active Substance: BIOTIN
     Dosage: ONGOING YES
     Route: 065
  4. ROSUVASTATIN. [Concomitant]
     Active Substance: ROSUVASTATIN
     Dosage: ONGOING YES
     Route: 065
  5. SPIRONOLACTONE. [Concomitant]
     Active Substance: SPIRONOLACTONE
     Dosage: ONGOING YES
     Route: 065
  6. OCREVUS [Suspect]
     Active Substance: OCRELIZUMAB
     Indication: RELAPSING-REMITTING MULTIPLE SCLEROSIS
     Dosage: 300 MG AT DAY 0 AND 14, THEN 600 MG EVERY 6 MONTH
     Route: 042
     Dates: start: 20181219
  7. ZOPICLONE [Concomitant]
     Active Substance: ZOPICLONE
     Dosage: ONGOING YES
     Route: 065
  8. DEMULEN?28 [Concomitant]
     Active Substance: ETHINYL ESTRADIOL\ETHYNODIOL DIACETATE
     Indication: CONTRACEPTION
     Route: 065
  9. DEXEDRINE [Concomitant]
     Active Substance: DEXTROAMPHETAMINE SULFATE
     Indication: ATTENTION DEFICIT HYPERACTIVITY DISORDER
     Dosage: ONGOING: YES
     Route: 065
  10. AMITRIPTYLINE [Concomitant]
     Active Substance: AMITRIPTYLINE
     Dosage: ONGOING YES
     Route: 065
  11. RABEPRAZOLE SODIUM. [Concomitant]
     Active Substance: RABEPRAZOLE SODIUM
     Dosage: ONGOING YES
     Route: 065

REACTIONS (28)
  - Headache [Unknown]
  - Pyrexia [Unknown]
  - Fall [Unknown]
  - Hypertension [Recovered/Resolved]
  - Thermal burn [Unknown]
  - Unevaluable event [Unknown]
  - Vomiting [Recovered/Resolved]
  - Hypoaesthesia [Unknown]
  - Eye pruritus [Recovered/Resolved]
  - Fatigue [Not Recovered/Not Resolved]
  - Palpitations [Recovered/Resolved]
  - Oropharyngeal pain [Unknown]
  - Palpitations [Unknown]
  - Infusion related reaction [Recovering/Resolving]
  - Hypotension [Recovered/Resolved]
  - Paraesthesia [Not Recovered/Not Resolved]
  - Cardiac flutter [Recovered/Resolved]
  - Influenza [Recovered/Resolved]
  - Lacrimation increased [Recovered/Resolved]
  - Pain in extremity [Not Recovered/Not Resolved]
  - Feeling abnormal [Unknown]
  - Emotional distress [Unknown]
  - Infusion related reaction [Not Recovered/Not Resolved]
  - Dyspnoea [Recovered/Resolved]
  - Hypersensitivity [Recovered/Resolved]
  - Infusion related reaction [Recovered/Resolved]
  - Vertigo [Recovered/Resolved]
  - Illness [Recovered/Resolved]

NARRATIVE: CASE EVENT DATE: 20181219
